FAERS Safety Report 20246800 (Version 1)
Quarter: 2021Q4

REPORT INFORMATION
  Report Type: Report from Study
  Country: IT (occurrence: IT)
  Receive Date: 20211229
  Receipt Date: 20211229
  Transmission Date: 20220303
  Serious: Yes (Other)
  Sender: FDA-Public Use
  Company Number: None

PATIENT
  Sex: Female

DRUGS (1)
  1. GLATIRAMER ACETATE [Suspect]
     Active Substance: GLATIRAMER ACETATE
     Indication: Multiple sclerosis
     Dosage: 3 DOSAGE FORM, QW
     Route: 058
     Dates: start: 20201014

REACTIONS (1)
  - Breast adenoma [Not Recovered/Not Resolved]

NARRATIVE: CASE EVENT DATE: 20210917
